FAERS Safety Report 7850517-2 (Version None)
Quarter: 2011Q4

REPORT INFORMATION
  Report Type: 
  Country: None (occurrence: None)
  Receive Date: 20111026
  Receipt Date: 20111026
  Transmission Date: 20120403
  Serious: Yes (Other)
  Sender: FDA-Public Use
  Company Number: None

PATIENT
  Age: 45 Year
  Sex: Male
  Weight: 71.214 kg

DRUGS (3)
  1. PROPECIA [Concomitant]
     Route: 048
  2. TERBINAFINE HCL [Suspect]
     Indication: ONYCHOMYCOSIS
     Dosage: 1 TABLET
     Route: 048
     Dates: start: 20110928, end: 20111024
  3. ASPIRIN [Concomitant]
     Route: 048

REACTIONS (4)
  - URTICARIA [None]
  - DIZZINESS [None]
  - HEADACHE [None]
  - TINNITUS [None]
